FAERS Safety Report 20092595 (Version 3)
Quarter: 2021Q4

REPORT INFORMATION
  Report Type: Report from Study
  Country: CH (occurrence: CH)
  Receive Date: 20211119
  Receipt Date: 20211229
  Transmission Date: 20220304
  Serious: Yes (Hospitalization, Other)
  Sender: FDA-Public Use
  Company Number: CH-ABBVIE-21K-151-4165909-00

PATIENT
  Sex: Male

DRUGS (3)
  1. CARBIDOPA\LEVODOPA [Suspect]
     Active Substance: CARBIDOPA\LEVODOPA
     Indication: Parkinson^s disease
     Dosage: CRD: 4.8 ML/H, CRN: 0 ML/H, ED: 1.0 ML?16H THERAPY
     Route: 050
     Dates: start: 20211004, end: 20211008
  2. CARBIDOPA\LEVODOPA [Suspect]
     Active Substance: CARBIDOPA\LEVODOPA
     Dosage: MD: 3.0 ML, CRD: 3.6 ML/H, CRN: 0 ML/H, ED: 1.0 ML?16H THERAPY
     Route: 050
     Dates: start: 20211008, end: 20211011
  3. CARBIDOPA\LEVODOPA [Suspect]
     Active Substance: CARBIDOPA\LEVODOPA
     Dosage: MD: 2.5 ML, CRD: 3.2 ML/H, CRN: 0 ML/H, ED: 1.0 ML?16H THERAPY
     Route: 050
     Dates: start: 20211011

REACTIONS (1)
  - Back disorder [Unknown]

NARRATIVE: CASE EVENT DATE: 20210101
